FAERS Safety Report 19884917 (Version 1)
Quarter: 2021Q3

REPORT INFORMATION
  Report Type: Spontaneous
  Country: US (occurrence: US)
  Receive Date: 20210927
  Receipt Date: 20210927
  Transmission Date: 20211014
  Serious: Yes (Other)
  Sender: FDA-Public Use
  Company Number: None

PATIENT
  Age: 57 Year
  Sex: Male
  Weight: 104.4 kg

DRUGS (7)
  1. SUDEFED [Concomitant]
  2. OXIGEN [Concomitant]
  3. IRBESARTAN. [Concomitant]
     Active Substance: IRBESARTAN
  4. MULTIVITAMINS [Concomitant]
     Active Substance: VITAMINS
  5. DIAZEPAM. [Concomitant]
     Active Substance: DIAZEPAM
  6. GADOLINIUM CONTRAST [Suspect]
     Active Substance: GADOLINIUM
     Indication: MAGNETIC RESONANCE IMAGING
     Dates: end: 20210916
  7. TESTOSTERONE CREME [Concomitant]

REACTIONS (1)
  - Migraine with aura [None]

NARRATIVE: CASE EVENT DATE: 20210927
